FAERS Safety Report 11364751 (Version 1)
Quarter: 2015Q3

REPORT INFORMATION
  Report Type: Spontaneous
  Country: RO (occurrence: RO)
  Receive Date: 20150811
  Receipt Date: 20150811
  Transmission Date: 20151125
  Serious: Yes (Hospitalization)
  Sender: FDA-Public Use
  Company Number: RO-FRESENIUS KABI-FK201503807

PATIENT
  Age: 71 Year
  Sex: Female

DRUGS (7)
  1. ALEMTUZUMAB [Concomitant]
     Active Substance: ALEMTUZUMAB
  2. CYCLOPHOSPHAMIDE (MANUFACTURER UNKNOWN) [Suspect]
     Active Substance: CYCLOPHOSPHAMIDE
     Indication: CHRONIC LYMPHOCYTIC LEUKAEMIA
     Route: 065
  3. BLOOD TRANSFUSION [Concomitant]
     Active Substance: WHOLE BLOOD
  4. FLUDARABINE [Suspect]
     Active Substance: FLUDARABINE PHOSPHATE
     Indication: CHRONIC LYMPHOCYTIC LEUKAEMIA RECURRENT
     Route: 065
  5. ERYTHROPOIETIN [Concomitant]
     Active Substance: ERYTHROPOIETIN
  6. ANTIBIOTICS [Concomitant]
     Active Substance: UNSPECIFIED INGREDIENT
  7. LAMIVUDINE. [Concomitant]
     Active Substance: LAMIVUDINE

REACTIONS (1)
  - Acute lymphocytic leukaemia [Not Recovered/Not Resolved]
